FAERS Safety Report 8106569-8 (Version None)
Quarter: 2012Q1

REPORT INFORMATION
  Report Type: 
  Country: None (occurrence: None)
  Receive Date: 20120130
  Receipt Date: 20120119
  Transmission Date: 20120608
  Serious: Yes (Congenital Anomaly)
  Sender: FDA-Public Use
  Company Number: 2012015103

PATIENT

DRUGS (3)
  1. FRAGMIN [Suspect]
     Dosage: 90 UG, UNK, TRANSPLACENTAL
     Route: 064
  2. PEGASYS [Suspect]
     Indication: POLYCYTHAEMIA
     Dosage: 90 UG, WEEKLY, TRANSPLACENTAL
     Route: 064
  3. ACETYLSALICYLIC ACID SRT [Suspect]
     Dosage: TRANSPLACENTAL
     Route: 064

REACTIONS (2)
  - MATERNAL DRUGS AFFECTING FOETUS [None]
  - DEAFNESS CONGENITAL [None]
